FAERS Safety Report 22392127 (Version 1)
Quarter: 2023Q2

REPORT INFORMATION
  Report Type: Spontaneous
  Country: US (occurrence: US)
  Receive Date: 20230601
  Receipt Date: 20230601
  Transmission Date: 20230721
  Serious: No
  Sender: FDA-Public Use
  Company Number: US-ELI_LILLY_AND_COMPANY-US202305014257

PATIENT
  Sex: Female

DRUGS (3)
  1. RETEVMO [Interacting]
     Active Substance: SELPERCATINIB
     Indication: Non-small cell lung cancer
     Dosage: 120 MG, BID
     Route: 048
  2. RETEVMO [Interacting]
     Active Substance: SELPERCATINIB
     Indication: Metastasis
  3. AMIODARONE [Interacting]
     Active Substance: AMIODARONE
     Indication: Product used for unknown indication
     Dosage: UNK UNK, UNKNOWN
     Route: 065

REACTIONS (3)
  - Blood alkaline phosphatase increased [Unknown]
  - Liver function test increased [Unknown]
  - Drug interaction [Unknown]
